FAERS Safety Report 15852691 (Version 1)
Quarter: 2019Q1

REPORT INFORMATION
  Report Type: Spontaneous
  Country: FR (occurrence: FR)
  Receive Date: 20190122
  Receipt Date: 20190122
  Transmission Date: 20190417
  Serious: Yes (Other)
  Sender: FDA-Public Use
  Company Number: PHHY2019FR011825

PATIENT
  Age: 77 Year
  Sex: Male

DRUGS (1)
  1. EXELON [Suspect]
     Active Substance: RIVASTIGMINE TARTRATE
     Indication: DEMENTIA
     Dosage: 1 DF, QD (4.6MG/24H)
     Route: 062
     Dates: start: 201707, end: 201808

REACTIONS (3)
  - Hallucination [Recovering/Resolving]
  - Condition aggravated [Recovering/Resolving]
  - Product administration interrupted [Recovering/Resolving]

NARRATIVE: CASE EVENT DATE: 2018
